FAERS Safety Report 20995613 (Version 1)
Quarter: 2022Q2

REPORT INFORMATION
  Report Type: Spontaneous
  Country: US (occurrence: US)
  Receive Date: 20220623
  Receipt Date: 20220623
  Transmission Date: 20220721
  Serious: Yes (Other)
  Sender: FDA-Public Use
  Company Number: US-JNJFOC-20220643671

PATIENT

DRUGS (4)
  1. IBUPROFEN [Suspect]
     Active Substance: IBUPROFEN
     Indication: Product used for unknown indication
     Route: 065
  2. DICLOFENAC [Suspect]
     Active Substance: DICLOFENAC
     Indication: Product used for unknown indication
     Route: 065
  3. NAPROXEN [Suspect]
     Active Substance: NAPROXEN
     Indication: Product used for unknown indication
     Route: 065
  4. MISOPROSTOL [Suspect]
     Active Substance: MISOPROSTOL
     Indication: Product used for unknown indication
     Dosage: 400 MCG
     Route: 065

REACTIONS (8)
  - Cardiac arrest [Unknown]
  - Ventricular fibrillation [Unknown]
  - Precerebral artery occlusion [Unknown]
  - Acute myocardial infarction [Unknown]
  - Transient ischaemic attack [Unknown]
  - Acute kidney injury [Unknown]
  - Renal failure [Unknown]
  - Cerebrovascular disorder [Unknown]
